FAERS Safety Report 4586654-8 (Version None)
Quarter: 2005Q1

REPORT INFORMATION
  Report Type: 
  Country: None (occurrence: None)
  Receive Date: 20050218
  Receipt Date: 20040929
  Transmission Date: 20050727
  Serious: No
  Sender: FDA-Public Use
  Company Number: US-BRISTOL-MYERS SQUIBB COMPANY-12718904

PATIENT
  Age: 77 Year
  Sex: Male
  Weight: 69 kg

DRUGS (4)
  1. PARAPLATIN [Suspect]
     Indication: PROSTATE CANCER
     Dosage: THERAPY START DATE: 12-APR-2004
     Route: 042
     Dates: start: 20040928, end: 20040928
  2. TAXOL [Suspect]
     Indication: PROSTATE CANCER
     Route: 042
     Dates: start: 20040928, end: 20040928
  3. CIMETIDINE [Concomitant]
     Indication: PREMEDICATION
  4. BENADRYL [Concomitant]

REACTIONS (1)
  - HYPERSENSITIVITY [None]
